FAERS Safety Report 6237328 (Version 3)
Quarter: 2020Q3

REPORT INFORMATION
  Report Type: Report from Study
  Country: US (occurrence: US)
  Receive Date: 20070213
  Receipt Date: 20080423
  Transmission Date: 20201104
  Serious: Yes (Hospitalization, Disabling, Other)
  Sender: FDA-Public Use
  Company Number: HQWYE466205FEB07

PATIENT
  Age: 48 Year
  Sex: Male
  Weight: 64.5 kg

DRUGS (7)
  1. CIPRO [Concomitant]
     Active Substance: CIPROFLOXACIN HYDROCHLORIDE
     Dosage: 500 MG TWICE DAILY FOR FOURTEEN DAYS
     Route: 048
     Dates: start: 200701
  2. NEORAL [Suspect]
     Active Substance: CYCLOSPORINE
     Indication: PROPHYLAXIS AGAINST TRANSPLANT REJECTION
     Route: 048
     Dates: start: 20050930, end: 20070425
  3. ARANESP [Concomitant]
     Active Substance: DARBEPOETIN ALFA
     Dosage: 60 MCG/0.3 ML SYRINGE EVERY OTHER WEEK
     Route: 058
     Dates: end: 2007
  4. BACTRIM DS [Concomitant]
     Active Substance: SULFAMETHOXAZOLE\TRIMETHOPRIM
     Indication: INFECTION PROPHYLAXIS
     Dosage: 1 TABLET EVERY MON ? WED ? FRI
     Route: 048
     Dates: start: 20060801
  5. ARANESP [Concomitant]
     Active Substance: DARBEPOETIN ALFA
     Dosage: 60 MCG Q WEDNESDAY
     Route: 042
     Dates: start: 20070207
  6. ACTIGALL [Concomitant]
     Active Substance: URSODIOL
     Indication: CHOLELITHIASIS
     Route: 048
     Dates: start: 20060405
  7. LEXAPRO [Concomitant]
     Active Substance: ESCITALOPRAM OXALATE
     Indication: DEPRESSION
     Route: 048
     Dates: start: 20061212, end: 20070203

REACTIONS (3)
  - Acute kidney injury [Recovered/Resolved]
  - Condition aggravated [Recovered/Resolved]
  - Anaemia [Recovered/Resolved]

NARRATIVE: CASE EVENT DATE: 20070129
